FAERS Safety Report 4997299-X (Version None)
Quarter: 2006Q2

REPORT INFORMATION
  Report Type: 
  Country: None (occurrence: None)
  Receive Date: 20060505
  Receipt Date: 20060424
  Transmission Date: 20061013
  Serious: Yes (Other)
  Sender: FDA-Public Use
  Company Number: 2006055065

PATIENT
  Sex: Male

DRUGS (1)
  1. BENADRYL ALLERGY/SINUS (DIPHENHYDRAMINE, PSEUDOEPHEDRINE) [Suspect]
     Indication: DRUG EXPOSURE DURING PREGNANCY
     Dosage: PLACENTAL
     Route: 064

REACTIONS (3)
  - AMPHETAMINES POSITIVE [None]
  - DRUG EXPOSURE DURING PREGNANCY [None]
  - PREMATURE BABY [None]
